FAERS Safety Report 4629136-7 (Version None)
Quarter: 2005Q2

REPORT INFORMATION
  Report Type: 
  Country: None (occurrence: None)
  Receive Date: 20050407
  Receipt Date: 20050329
  Transmission Date: 20051028
  Serious: Yes (Hospitalization, Other)
  Sender: FDA-Public Use
  Company Number: 200512599US

PATIENT
  Age: 67 Year
  Sex: Female

DRUGS (6)
  1. LANTUS [Suspect]
     Indication: DIABETES MELLITUS NON-INSULIN-DEPENDENT
     Dosage: DOSE UNIT: UNITS
  2. OPTICLIK (INSULIN INJECTION PEN) [Suspect]
     Indication: DIABETES MELLITUS NON-INSULIN-DEPENDENT
     Dosage: DOSE: UNK
     Dates: start: 20050329
  3. HUMALOG [Concomitant]
     Dosage: DOSE: UNKNOWN
  4. FLAGYL [Concomitant]
     Dosage: DOSE: UNKNOWN
  5. LEVAQUIN [Concomitant]
     Dosage: DOSE: UNKNOWN
  6. ZYLOPRIM [Concomitant]
     Dosage: DOSE: UNKNOWN

REACTIONS (3)
  - BLOOD GLUCOSE INCREASED [None]
  - DIVERTICULITIS [None]
  - MEDICATION ERROR [None]
